FAERS Safety Report 7944913-2 (Version None)
Quarter: 2011Q4

REPORT INFORMATION
  Report Type: 
  Country: None (occurrence: None)
  Receive Date: 20111129
  Receipt Date: 20110804
  Transmission Date: 20120403
  Serious: No
  Sender: FDA-Public Use
  Company Number: US-MYLANLABS-2011S1016324

PATIENT
  Age: 60 Year
  Sex: Female
  Weight: 63.5 kg

DRUGS (4)
  1. ZOLOFT [Concomitant]
     Indication: DEPRESSION
  2. PHENOBARBITAL TAB [Concomitant]
     Indication: CONVULSION
  3. LEVETIRACETAM [Suspect]
     Indication: GRAND MAL CONVULSION
     Route: 048
     Dates: start: 20110728
  4. DILANTIN [Concomitant]
     Indication: CONVULSION

REACTIONS (3)
  - SOMNOLENCE [None]
  - CHILLS [None]
  - CONSTIPATION [None]
